FAERS Safety Report 20547602 (Version 1)
Quarter: 2022Q1

REPORT INFORMATION
  Report Type: Report from Study
  Country: US (occurrence: US)
  Receive Date: 20220303
  Receipt Date: 20220303
  Transmission Date: 20220423
  Serious: Yes (Other)
  Sender: FDA-Public Use
  Company Number: US-GILEAD-2022-0570607

PATIENT
  Age: 34 Year
  Sex: Female

DRUGS (34)
  1. SOFOSBUVIR\VELPATASVIR [Suspect]
     Active Substance: SOFOSBUVIR\VELPATASVIR
     Indication: Hepatitis C
     Dosage: 1 DOSAGE FORM, QD
     Route: 048
     Dates: start: 20210609, end: 20210901
  2. ACETAMINOPHEN [Concomitant]
     Active Substance: ACETAMINOPHEN
  3. BACTRIM [Concomitant]
     Active Substance: SULFAMETHOXAZOLE\TRIMETHOPRIM
  4. BELATACEPT [Concomitant]
     Active Substance: BELATACEPT
  5. CEFPODOXIME [Concomitant]
     Active Substance: CEFPODOXIME
  6. CEFTRIAXONE [Concomitant]
     Active Substance: CEFTRIAXONE
  7. CELLCEPT [Concomitant]
     Active Substance: MYCOPHENOLATE MOFETIL
  8. CIPRO [Concomitant]
     Active Substance: CIPROFLOXACIN HYDROCHLORIDE
  9. CLONAZEPAM [Concomitant]
     Active Substance: CLONAZEPAM
  10. CLONIDINE HYDROCHLORIDE [Concomitant]
     Active Substance: CLONIDINE HYDROCHLORIDE
  11. CLOTRIMAZOLE [Concomitant]
     Active Substance: CLOTRIMAZOLE
  12. ASCORBIC ACID\CRANBERRY [Concomitant]
     Active Substance: ASCORBIC ACID\CRANBERRY
  13. DOCUSATE SODIUM [Concomitant]
     Active Substance: DOCUSATE SODIUM
  14. FAMOTIDINE [Concomitant]
     Active Substance: FAMOTIDINE
  15. GABAPENTIN [Concomitant]
     Active Substance: GABAPENTIN
  16. KEFLEX [Concomitant]
     Active Substance: CEPHALEXIN
  17. LEVONORGESTREL [Concomitant]
     Active Substance: LEVONORGESTREL
  18. LEVOTHYROXINE [Concomitant]
     Active Substance: LEVOTHYROXINE
  19. LIDOCAINE [Concomitant]
     Active Substance: LIDOCAINE
  20. MELATONIN [Concomitant]
     Active Substance: MELATONIN
  21. MIRCERA [Concomitant]
     Active Substance: METHOXY POLYETHYLENE GLYCOL-EPOETIN BETA
  22. NYSTATIN [Concomitant]
     Active Substance: NYSTATIN
  23. OXYCODONE [Concomitant]
     Active Substance: OXYCODONE
  24. RENVELA [Concomitant]
     Active Substance: SEVELAMER CARBONATE
  25. SODIUM BICARBONATE [Concomitant]
     Active Substance: SODIUM BICARBONATE
  26. SOLU-MEDROL [Concomitant]
     Active Substance: METHYLPREDNISOLONE SODIUM SUCCINATE
  27. TACROLIMUS [Concomitant]
     Active Substance: TACROLIMUS
  28. THYMOGLOBULIN [Concomitant]
     Active Substance: LAPINE T-LYMPHOCYTE IMMUNE GLOBULIN
  29. TRAZODONE [Concomitant]
     Active Substance: TRAZODONE HYDROCHLORIDE
  30. TRIAMCINOLONE [Concomitant]
     Active Substance: TRIAMCINOLONE
  31. VALCYTE [Concomitant]
     Active Substance: VALGANCICLOVIR HYDROCHLORIDE
  32. VANTIN [Concomitant]
     Active Substance: CEFPODOXIME PROXETIL
  33. WELLBUTRIN [Concomitant]
     Active Substance: BUPROPION HYDROCHLORIDE
  34. ZOSYN [Concomitant]
     Active Substance: PIPERACILLIN SODIUM\TAZOBACTAM SODIUM

REACTIONS (14)
  - Transplant rejection [Unknown]
  - Renal tubular necrosis [Unknown]
  - Thrombotic microangiopathy [Unknown]
  - Escherichia infection [Unknown]
  - Cytomegalovirus infection [Unknown]
  - Fatigue [Unknown]
  - Myalgia [Unknown]
  - Musculoskeletal chest pain [Unknown]
  - Vomiting [Unknown]
  - Diarrhoea [Unknown]
  - Decreased appetite [Unknown]
  - Oedema peripheral [Unknown]
  - Aphthous ulcer [Unknown]
  - Pyrexia [Unknown]

NARRATIVE: CASE EVENT DATE: 20210613
